FAERS Safety Report 6368184-6 (Version None)
Quarter: 2009Q3

REPORT INFORMATION
  Report Type: 
  Country: None (occurrence: None)
  Receive Date: 20090922
  Receipt Date: 20090911
  Transmission Date: 20100115
  Serious: Yes (Hospitalization)
  Sender: FDA-Public Use
  Company Number: US-NOVOPROD-291605

PATIENT
  Sex: Female
  Weight: 49.887 kg

DRUGS (1)
  1. NORDITROPIN NORDIFLEX [Suspect]
     Indication: BODY HEIGHT BELOW NORMAL
     Dosage: 30 MG, QD
     Route: 058
     Dates: start: 20090801, end: 20090904

REACTIONS (3)
  - HEPATOMEGALY [None]
  - PAIN [None]
  - VOMITING [None]
